FAERS Safety Report 5073062-9 (Version None)
Quarter: 2006Q3

REPORT INFORMATION
  Report Type: 
  Country: None (occurrence: None)
  Receive Date: 20060802
  Receipt Date: 20060721
  Transmission Date: 20061208
  Serious: Yes (Other)
  Sender: FDA-Public Use
  Company Number: 2006-07-1704

PATIENT
  Age: 47 Year
  Sex: Female

DRUGS (2)
  1. PEG-INTRON [Suspect]
     Indication: HEPATITIS C
     Dosage: SUBCUTANEOUS
     Route: 058
     Dates: start: 20060419
  2. RIBAVIRIN [Suspect]
     Indication: HEPATITIS C
     Dosage: ORALS
     Route: 048
     Dates: start: 20060419

REACTIONS (4)
  - DEHYDRATION [None]
  - DYSPNOEA [None]
  - INJECTION SITE BRUISING [None]
  - WHITE BLOOD CELL COUNT DECREASED [None]
